FAERS Safety Report 7854785 (Version 3)
Quarter: 2013Q2

REPORT INFORMATION
  Report Type: Spontaneous
  Country: JP (occurrence: JP)
  Receive Date: 20110314
  Receipt Date: 20130429
  Transmission Date: 20140414
  Serious: Yes (Other)
  Sender: FDA-Public Use
  Company Number: JP-JNJFOC-20110303695

PATIENT
  Age: 85 Year
  Sex: Female

DRUGS (5)
  1. ITRACONAZOLE [Suspect]
     Indication: URINARY TRACT INFECTION
     Route: 041
     Dates: start: 20110215, end: 20110302
  2. ITRACONAZOLE [Suspect]
     Indication: URINARY TRACT INFECTION
     Route: 048
     Dates: start: 20110302, end: 20110310
  3. ANTIFLATULENTS [Concomitant]
     Route: 065
     Dates: end: 20110310
  4. NUTRITIONAL SUPPLEMENT [Concomitant]
     Route: 042
     Dates: end: 20110310
  5. ANTIDIARRHEALS [Concomitant]
     Route: 065

REACTIONS (2)
  - Electrocardiogram abnormal [Unknown]
  - Sinus bradycardia [Recovered/Resolved]
